FAERS Safety Report 22225110 (Version 2)
Quarter: 2023Q2

REPORT INFORMATION
  Report Type: Report from Study
  Country: DK (occurrence: None)
  Receive Date: 20230418
  Receipt Date: 20230514
  Transmission Date: 20230722
  Serious: Yes (Hospitalization)
  Sender: FDA-Public Use
  Company Number: DK-ROCHE-3332822

PATIENT
  Sex: Male

DRUGS (18)
  1. COBIMETINIB [Suspect]
     Active Substance: COBIMETINIB
     Indication: Non-small cell lung cancer
     Route: 048
     Dates: start: 20230327
  2. COBIMETINIB [Suspect]
     Active Substance: COBIMETINIB
     Indication: BRAF gene mutation
  3. VEMURAFENIB [Suspect]
     Active Substance: VEMURAFENIB
     Indication: Non-small cell lung cancer
     Route: 048
     Dates: start: 20230327
  4. VEMURAFENIB [Suspect]
     Active Substance: VEMURAFENIB
     Indication: BRAF gene mutation
  5. PIPERACILLIN SODIUM\TAZOBACTAM SODIUM [Concomitant]
     Active Substance: PIPERACILLIN SODIUM\TAZOBACTAM SODIUM
     Indication: Infection
     Dosage: 4+0,5 G TIMES 3 DAILY
     Dates: start: 20230330
  6. MORFIN [Concomitant]
     Indication: Oral pain
     Dates: start: 20230403
  7. ANDOLEX [Concomitant]
     Dates: start: 20230403
  8. PREDNISOLONE [Concomitant]
     Active Substance: PREDNISOLONE
     Indication: Rash
     Dates: start: 20230403
  9. PREDNISOLONE [Concomitant]
     Active Substance: PREDNISOLONE
     Dates: start: 20230401
  10. FUROSEMIDE [Concomitant]
     Active Substance: FUROSEMIDE
     Indication: Weight increased
     Dates: start: 20230403
  11. FUROSEMIDE [Concomitant]
     Active Substance: FUROSEMIDE
     Indication: Oedema peripheral
  12. POTASSIUM CHLORIDE [Concomitant]
     Active Substance: POTASSIUM CHLORIDE
     Indication: Oedema peripheral
     Dates: start: 20230403
  13. POTASSIUM CHLORIDE [Concomitant]
     Active Substance: POTASSIUM CHLORIDE
     Indication: Weight increased
  14. DIGOXIN [Concomitant]
     Active Substance: DIGOXIN
     Indication: Atrial fibrillation
  15. CLOBETASOL [Concomitant]
     Active Substance: CLOBETASOL
     Indication: Rash
     Dates: start: 20230401
  16. LOCOID [Concomitant]
     Active Substance: HYDROCORTISONE BUTYRATE
     Indication: Rash
     Dates: start: 20230401
  17. NASONEX [Concomitant]
     Active Substance: MOMETASONE FUROATE
     Indication: Aphthous ulcer
     Dates: start: 20230401
  18. SOLU-MEDROL [Concomitant]
     Active Substance: METHYLPREDNISOLONE SODIUM SUCCINATE
     Indication: Rash
     Route: 042
     Dates: start: 20230331

REACTIONS (1)
  - Infection [Not Recovered/Not Resolved]

NARRATIVE: CASE EVENT DATE: 20230330
